FAERS Safety Report 7364889-9 (Version None)
Quarter: 2011Q1

REPORT INFORMATION
  Report Type: 
  Country: None (occurrence: None)
  Receive Date: 20110321
  Receipt Date: 20110311
  Transmission Date: 20110831
  Serious: Yes (Hospitalization)
  Sender: FDA-Public Use
  Company Number: US-ASTRAZENECA-2011SE13723

PATIENT
  Age: 83 Year
  Sex: Female
  Weight: 43.5 kg

DRUGS (8)
  1. NAMENDA [Concomitant]
  2. CAVITABLE [Concomitant]
  3. SYNTHROID [Concomitant]
     Indication: THYROID DISORDER
  4. BONAVAPRIL [Concomitant]
  5. AMBIEN [Concomitant]
     Indication: INSOMNIA
  6. SEROQUEL [Suspect]
     Indication: AGITATION
     Route: 048
  7. LIOTHYROXIN [Concomitant]
     Indication: THYROID DISORDER
  8. EXELON [Concomitant]

REACTIONS (4)
  - SHOULDER OPERATION [None]
  - SPEECH DISORDER [None]
  - DEPRESSED LEVEL OF CONSCIOUSNESS [None]
  - SOMNOLENCE [None]
